FAERS Safety Report 20393520 (Version 5)
Quarter: 2022Q2

REPORT INFORMATION
  Report Type: Spontaneous
  Country: JP (occurrence: JP)
  Receive Date: 20220128
  Receipt Date: 20220527
  Transmission Date: 20220721
  Serious: Yes (Hospitalization, Other)
  Sender: FDA-Public Use
  Company Number: JP-MSD-M2022-02292

PATIENT
  Age: 79 Year
  Sex: Male

DRUGS (1)
  1. KEYTRUDA [Suspect]
     Active Substance: PEMBROLIZUMAB
     Indication: Non-small cell lung cancer stage IV
     Dosage: 200 MILLIGRAM, Q3W
     Route: 041
     Dates: start: 202112

REACTIONS (3)
  - Thrombophlebitis migrans [Recovering/Resolving]
  - Antiacetylcholine receptor antibody positive [Unknown]
  - Muscular weakness [Unknown]

NARRATIVE: CASE EVENT DATE: 20220101
